FAERS Safety Report 4837014-3 (Version None)
Quarter: 2005Q4

REPORT INFORMATION
  Report Type: 
  Country: None (occurrence: None)
  Receive Date: 20051121
  Receipt Date: 20051031
  Transmission Date: 20060501
  Serious: Yes (Other)
  Sender: FDA-Public Use
  Company Number: ENTC2005-0191

PATIENT
  Age: 71 Year
  Sex: Male

DRUGS (3)
  1. STALEVO 100 [Suspect]
     Indication: PARKINSON'S DISEASE
     Dosage: 100 MG Q8H, ORAL
     Route: 048
     Dates: start: 20050625, end: 20050625
  2. VITAMIN B COMPLEX WITH C [Concomitant]
  3. SELEGILINE HCL [Concomitant]

REACTIONS (7)
  - BALANCE DISORDER [None]
  - DIPLEGIA [None]
  - DRUG EFFECT DECREASED [None]
  - HYPERTONIA [None]
  - PHARMACEUTICAL PRODUCT COMPLAINT [None]
  - SPEECH DISORDER [None]
  - TREMOR [None]
